FAERS Safety Report 23327953 (Version 1)
Quarter: 2023Q4

REPORT INFORMATION
  Report Type: Spontaneous
  Country: US (occurrence: None)
  Receive Date: 20231221
  Receipt Date: 20231221
  Transmission Date: 20240110
  Serious: Yes (Hospitalization)
  Sender: FDA-Public Use
  Company Number: None

PATIENT
  Age: 63 Year
  Sex: Female

DRUGS (3)
  1. OPSUMIT [Suspect]
     Active Substance: MACITENTAN
     Indication: Pulmonary arterial hypertension
     Dosage: 10MG ONCE DAILY PO
     Route: 048
     Dates: start: 202109
  2. TADALAFILL [Concomitant]
  3. TYVASO [Concomitant]
     Active Substance: TREPROSTINIL

REACTIONS (10)
  - Cough [None]
  - Oedema [None]
  - Dizziness [None]
  - Cognitive disorder [None]
  - Asthenia [None]
  - Tremor [None]
  - Dyspnoea [None]
  - Fatigue [None]
  - Carbon dioxide abnormal [None]
  - Polyuria [None]

NARRATIVE: CASE EVENT DATE: 20231215
